FAERS Safety Report 6389630-8 (Version None)
Quarter: 2009Q4

REPORT INFORMATION
  Report Type: 
  Country: None (occurrence: None)
  Receive Date: 20091006
  Receipt Date: 20090928
  Transmission Date: 20100525
  Serious: Yes (Hospitalization)
  Sender: FDA-Public Use
  Company Number: PHHY2009MX41783

PATIENT
  Age: 12 Year
  Sex: Female

DRUGS (4)
  1. TRILEPTAL [Suspect]
     Dosage: 3 TABLETS (300 MG) PER DAY
     Route: 048
     Dates: start: 20080901
  2. DEPAKENE [Concomitant]
     Indication: CONVULSION
     Dosage: 7 ML
  3. RISPERIDONE [Concomitant]
     Dosage: 1.5 ML
  4. OMEPRAZOLE [Concomitant]

REACTIONS (2)
  - BONE DISORDER [None]
  - SURGERY [None]
